FAERS Safety Report 9501284 (Version 1)
Quarter: 2013Q1

REPORT INFORMATION
  Report Type: Spontaneous
  Country: US (occurrence: None)
  Receive Date: 20130107
  Receipt Date: 20130107
  Transmission Date: 20140127
  Serious: No
  Sender: FDA-Public Use
  Company Number: PHEH2012US021548

PATIENT
  Age: 39 Year
  Sex: Female

DRUGS (1)
  1. GILENYA [Suspect]
     Indication: MULTIPLE SCLEROSIS
     Route: 048
     Dates: start: 20120905

REACTIONS (6)
  - Gait disturbance [None]
  - Dysstasia [None]
  - Sensation of heaviness [None]
  - Pain in extremity [None]
  - Muscular weakness [None]
  - Asthenia [None]
